FAERS Safety Report 6974517-X (Version None)
Quarter: 2010Q3

REPORT INFORMATION
  Report Type: 
  Country: None (occurrence: None)
  Receive Date: 20100909
  Receipt Date: 20090105
  Transmission Date: 20110219
  Serious: No
  Sender: FDA-Public Use
  Company Number: US-WYE-H06530908

PATIENT
  Sex: Female
  Weight: 126.67 kg

DRUGS (8)
  1. PRISTIQ [Suspect]
     Indication: DEPRESSION
     Route: 048
     Dates: start: 20081020
  2. LORTAB [Concomitant]
  3. EFFEXOR XR [Suspect]
     Dosage: UNKNOWN
  4. PREVACID [Concomitant]
  5. NEURONTIN [Concomitant]
  6. MICARDIS [Concomitant]
  7. FLEXERIL [Concomitant]
  8. GLUCOPHAGE [Concomitant]

REACTIONS (5)
  - CRYING [None]
  - DISTURBANCE IN ATTENTION [None]
  - MOOD SWINGS [None]
  - NAUSEA [None]
  - UNEVALUABLE EVENT [None]
